FAERS Safety Report 7652656-8 (Version None)
Quarter: 2011Q3

REPORT INFORMATION
  Report Type: 
  Country: None (occurrence: None)
  Receive Date: 20110802
  Receipt Date: 20110802
  Transmission Date: 20111222
  Serious: Yes (Other)
  Sender: FDA-Public Use
  Company Number: None

PATIENT
  Age: 21 Month
  Sex: Male
  Weight: 9.4 kg

DRUGS (1)
  1. OXCARBAZEPINE [Suspect]
     Indication: EPILEPSY
     Dosage: 2ML BID PO
     Route: 048
     Dates: end: 20100622

REACTIONS (2)
  - URTICARIA [None]
  - PRODUCT SUBSTITUTION ISSUE [None]
